FAERS Safety Report 4385723-5 (Version None)
Quarter: 2004Q2

REPORT INFORMATION
  Report Type: 
  Country: None (occurrence: None)
  Receive Date: 20040623
  Receipt Date: 20040406
  Transmission Date: 20050107
  Serious: Yes (Hospitalization)
  Sender: FDA-Public Use
  Company Number: JP_040503198

PATIENT
  Age: 65 Year
  Sex: Male
  Weight: 57 kg

DRUGS (7)
  1. HUMALOG [Suspect]
     Indication: DIABETES MELLITUS
     Dosage: 4 U DAY
     Dates: start: 20040106
  2. ACECOL (TEMOCAPRIL HYDROCHLORIDE) [Concomitant]
  3. GLUCOBAY [Concomitant]
  4. PRAVASTATIN SODIUM [Concomitant]
  5. SELBEX (TEPRENONE) [Concomitant]
  6. MAGNESIUM OXIDE [Concomitant]
  7. NOVORAPID (INSULIN ASPART) [Concomitant]

REACTIONS (7)
  - ANAEMIA [None]
  - HOARSENESS [None]
  - LOCAL SWELLING [None]
  - LYMPHADENOPATHY [None]
  - METASTASES TO LUNG [None]
  - OESOPHAGEAL CANCER METASTATIC [None]
  - PHARYNX DISCOMFORT [None]
